FAERS Safety Report 7442861-8 (Version None)
Quarter: 2011Q2

REPORT INFORMATION
  Report Type: 
  Country: None (occurrence: None)
  Receive Date: 20110425
  Receipt Date: 20110425
  Transmission Date: 20111010
  Serious: Yes (Other)
  Sender: FDA-Public Use
  Company Number: None

PATIENT
  Sex: Female

DRUGS (5)
  1. AMIODARONE HCL [Suspect]
     Indication: ATRIAL FIBRILLATION
     Dosage: 1 TABLET ONCE DAILY PO
     Route: 048
  2. PREDNISONE TAB [Concomitant]
  3. ASPIRIN [Concomitant]
  4. WARFARIN SODIUM [Concomitant]
  5. LIPITOR [Concomitant]

REACTIONS (2)
  - BLOOD THYROID STIMULATING HORMONE DECREASED [None]
  - THYROIDITIS [None]
